FAERS Safety Report 5918051-4 (Version None)
Quarter: 2008Q4

REPORT INFORMATION
  Report Type: 
  Country: None (occurrence: None)
  Receive Date: 20081014
  Receipt Date: 20081002
  Transmission Date: 20090506
  Serious: Yes (Death, Life-Threatening)
  Sender: FDA-Public Use
  Company Number: JP-PFIZER INC-2008083734

PATIENT
  Age: 80 Year
  Sex: Male
  Weight: 50.4 kg

DRUGS (18)
  1. VFEND [Suspect]
     Indication: RESPIRATORY MONILIASIS
     Dosage: TEXT:12 MG/KG/DAY BID
     Route: 042
     Dates: start: 20080117, end: 20080117
  2. VFEND [Suspect]
     Dosage: TEXT:6 MG/KG AND 3 MG/KG (TOTAL 9 MG/KG/DA
     Route: 042
     Dates: start: 20080118, end: 20080118
  3. VFEND [Suspect]
     Dosage: TEXT:6 MG/KG/DAY BID
     Route: 042
     Dates: start: 20080119, end: 20080130
  4. UNASYN [Concomitant]
     Route: 042
  5. CLAFORAN [Concomitant]
     Route: 042
     Dates: end: 20080121
  6. MUCOSOLVAN [Concomitant]
     Route: 048
     Dates: end: 20080118
  7. DASEN [Concomitant]
     Route: 048
     Dates: end: 20080118
  8. FAMOTIDINE [Concomitant]
     Route: 042
     Dates: start: 20080118, end: 20080121
  9. ALL OTHER THERAPEUTIC PRODUCTS [Concomitant]
     Route: 042
     Dates: start: 20080118, end: 20080121
  10. VITAJECT [Concomitant]
     Route: 042
     Dates: start: 20080118
  11. MINERALIN [Concomitant]
     Route: 042
     Dates: start: 20080118, end: 20080118
  12. SOLITA-T 3G [Concomitant]
     Route: 042
     Dates: end: 20080117
  13. VITANEURIN [Concomitant]
     Route: 042
     Dates: end: 20080117
  14. SOLITAX-H [Concomitant]
     Route: 042
     Dates: end: 20080117
  15. ATROPINE SULFATE [Concomitant]
     Route: 030
     Dates: start: 20080118, end: 20080118
  16. ATARAX [Concomitant]
     Route: 030
     Dates: start: 20080118, end: 20080118
  17. SODIUM CHLORIDE [Concomitant]
     Route: 042
  18. GLUCOSE [Concomitant]
     Route: 042
     Dates: end: 20080121

REACTIONS (2)
  - DEATH [None]
  - RESPIRATORY FAILURE [None]
